FAERS Safety Report 13060711 (Version 1)
Quarter: 2016Q4

REPORT INFORMATION
  Report Type: Spontaneous
  Country: US (occurrence: US)
  Receive Date: 20161225
  Receipt Date: 20161225
  Transmission Date: 20170207
  Serious: Yes (Other)
  Sender: FDA-Public Use
  Company Number: US-ASTRAZENECA-2016SF15817

PATIENT
  Sex: Male
  Weight: 107 kg

DRUGS (7)
  1. FOSINOPRIL [Concomitant]
     Active Substance: FOSINOPRIL
     Route: 048
  2. BYDUREON [Suspect]
     Active Substance: EXENATIDE
     Indication: TYPE 2 DIABETES MELLITUS
     Route: 058
     Dates: start: 20160601
  3. HYDROCHLOROTHIAZIDE. [Concomitant]
     Active Substance: HYDROCHLOROTHIAZIDE
     Route: 048
  4. AMARYL [Concomitant]
     Active Substance: GLIMEPIRIDE
     Dosage: TAKE ONE TABLET TWICE DAILY
  5. ASPIRIN. [Concomitant]
     Active Substance: ASPIRIN
     Route: 048
  6. GLUCOPHAG [Concomitant]
     Active Substance: METFORMIN HYDROCHLORIDE
     Route: 048
  7. LIPITOR [Concomitant]
     Active Substance: ATORVASTATIN CALCIUM
     Route: 048

REACTIONS (9)
  - Hypothyroidism [Unknown]
  - Injection site mass [Not Recovered/Not Resolved]
  - Hypertension [Unknown]
  - Injection site nodule [Unknown]
  - Prostate cancer [Unknown]
  - Hyperlipidaemia [Unknown]
  - Rhinitis allergic [Unknown]
  - Retinopathy [Unknown]
  - Diverticulum intestinal [Unknown]
